FAERS Safety Report 7276539-0 (Version None)
Quarter: 2011Q1

REPORT INFORMATION
  Report Type: 
  Country: None (occurrence: None)
  Receive Date: 20110204
  Receipt Date: 20110125
  Transmission Date: 20110831
  Serious: Yes (Life-Threatening)
  Sender: FDA-Public Use
  Company Number: FR-GENENTECH-313053

PATIENT
  Sex: Female

DRUGS (4)
  1. MABTHERA [Suspect]
     Indication: RHEUMATOID ARTHRITIS
     Dosage: 1 G, UNK
     Route: 042
     Dates: start: 20071114
  2. MABTHERA [Suspect]
     Dosage: UNK
     Route: 042
     Dates: start: 20100101
  3. MABTHERA [Suspect]
     Dosage: UNK
     Route: 042
     Dates: start: 20080801
  4. MABTHERA [Suspect]
     Dosage: UNK
     Route: 042
     Dates: start: 20110114

REACTIONS (2)
  - METASTASES TO BONE [None]
  - BREAST CANCER RECURRENT [None]
